FAERS Safety Report 7429619-0 (Version None)
Quarter: 2011Q2

REPORT INFORMATION
  Report Type: 
  Country: None (occurrence: None)
  Receive Date: 20110421
  Receipt Date: 20110415
  Transmission Date: 20111010
  Serious: Yes (Other)
  Sender: FDA-Public Use
  Company Number: B0713865A

PATIENT
  Age: 31 Year
  Sex: Female

DRUGS (1)
  1. AVODART [Suspect]
     Indication: ALOPECIA
     Dosage: .5MG PER DAY
     Route: 067
     Dates: start: 20080101, end: 20100901

REACTIONS (4)
  - ABORTION SPONTANEOUS [None]
  - ACCIDENTAL EXPOSURE [None]
  - OFF LABEL USE [None]
  - DRUG EXPOSURE DURING PREGNANCY [None]
